FAERS Safety Report 6752675-X (Version None)
Quarter: 2010Q2

REPORT INFORMATION
  Report Type: 
  Country: None (occurrence: None)
  Receive Date: 20100602
  Receipt Date: 20100526
  Transmission Date: 20101027
  Serious: Yes (Other)
  Sender: FDA-Public Use
  Company Number: US-MERCK-1005USA04671

PATIENT
  Age: 64 Year
  Sex: Female

DRUGS (2)
  1. FOSAMAX [Suspect]
     Dosage: TOTAL DURATION BTWN DAILY + WKLY DOSING WAS 10 YEARS
     Route: 048
  2. FOSAMAX [Suspect]
     Dosage: TOTAL DURATION BTWN DAILY + WKLY DOSING WAS 10 YEARS
     Route: 048

REACTIONS (4)
  - FEMUR FRACTURE [None]
  - LOWER LIMB FRACTURE [None]
  - PAIN [None]
  - THROMBOSIS [None]
